FAERS Safety Report 8632898 (Version 4)
Quarter: 2013Q2

REPORT INFORMATION
  Report Type: Spontaneous
  Country: BR (occurrence: BR)
  Receive Date: 20120625
  Receipt Date: 20130419
  Transmission Date: 20140414
  Serious: Yes (Other)
  Sender: FDA-Public Use
  Company Number: BR-ROCHE-699091

PATIENT
  Sex: Female
  Weight: 46 kg

DRUGS (6)
  1. RIVOTRIL [Suspect]
     Indication: DEPRESSION
     Dosage: 2 MG TABLET BEFORE SLEEP
     Route: 048
  2. INTERFERON ALFA-2A [Suspect]
     Indication: HEPATITIS C
     Route: 065
  3. SWINE FLU VACCINE [Suspect]
     Indication: PROPHYLAXIS
     Dosage: ONE SINGLE DOSE, STOP DATE: 2010
     Route: 030
  4. APRACUR (BRAZIL) [Concomitant]
     Indication: PYREXIA
     Dosage: WHEN NECESSARY
     Route: 048
  5. OMEPRAZOLE [Concomitant]
     Indication: DYSPEPSIA
     Dosage: WHEN NECESSARY
     Route: 048
  6. METAMUCIL [Concomitant]
     Route: 048

REACTIONS (18)
  - Hepatitis C [Not Recovered/Not Resolved]
  - Influenza like illness [Unknown]
  - Withdrawal syndrome [Unknown]
  - Malaise [Unknown]
  - Pyrexia [Unknown]
  - Abdominal pain upper [Unknown]
  - Somnolence [Unknown]
  - Balance disorder [Unknown]
  - Paraesthesia [Unknown]
  - Hyperhidrosis [Unknown]
  - Ill-defined disorder [Unknown]
  - Urine output decreased [Unknown]
  - Dependence [Unknown]
  - Nausea [Not Recovered/Not Resolved]
  - Tremor [Not Recovered/Not Resolved]
  - Anaemia [Recovering/Resolving]
  - Headache [Unknown]
  - Exophthalmos [Not Recovered/Not Resolved]
